FAERS Safety Report 4563652-1 (Version None)
Quarter: 2005Q1

REPORT INFORMATION
  Report Type: 
  Country: None (occurrence: None)
  Receive Date: 20050121
  Receipt Date: 20050111
  Transmission Date: 20050727
  Serious: Yes (Life-Threatening, Hospitalization)
  Sender: FDA-Public Use
  Company Number: HQWYE624522NOV04

PATIENT
  Age: 78 Year
  Sex: Male

DRUGS (10)
  1. CORDARONE [Suspect]
     Dosage: 200 MG 5X PER 1 WK ORAL
     Route: 048
     Dates: end: 20040828
  2. CORDARONE [Suspect]
     Dosage: 200 MG 5X PER 1 WK ORAL
     Route: 048
     Dates: start: 20040909
  3. IZILOX (MOXIFLOXACIN) [Suspect]
     Indication: LUNG INFECTION
     Dosage: 400 MG ORAL
     Route: 048
     Dates: start: 20040823, end: 20040828
  4. TADENAN          (PYGEUM AFRICANUM) [Concomitant]
  5. RAMIPRIL [Concomitant]
  6. KARDEGIC  (ACETYLSALICYLATE LYSINE) [Concomitant]
  7. PREVISCAN        (FLUINDIONE) [Concomitant]
  8. AMOXICILLIN AND CLAVULANATE POTASSIUM [Concomitant]
  9. OFLOXACIN [Concomitant]
  10. CORTICOSTEROID NOS (CORTICOSTEROID NOS) [Concomitant]

REACTIONS (10)
  - ACUTE PULMONARY OEDEMA [None]
  - CARDIOMYOPATHY [None]
  - CHEST PAIN [None]
  - DRUG INTERACTION [None]
  - DYSPNOEA [None]
  - HAEMOPTYSIS [None]
  - HYPOTHYROIDISM [None]
  - LUNG INFECTION [None]
  - RENAL FAILURE [None]
  - TORSADE DE POINTES [None]
